FAERS Safety Report 19667958 (Version 4)
Quarter: 2022Q2

REPORT INFORMATION
  Report Type: Spontaneous
  Country: IN (occurrence: IN)
  Receive Date: 20210806
  Receipt Date: 20220620
  Transmission Date: 20220721
  Serious: Yes (Other)
  Sender: FDA-Public Use
  Company Number: IN-PFIZER INC-2021073056

PATIENT
  Age: 64 Year
  Sex: Female

DRUGS (8)
  1. PALBOCICLIB [Suspect]
     Active Substance: PALBOCICLIB
     Indication: Breast cancer metastatic
     Dosage: ONCE A DAY, 3 WEEKS ON FOLLOWED BY 1 WEEK OFF
     Route: 048
     Dates: start: 20201205
  2. PALBOCICLIB [Suspect]
     Active Substance: PALBOCICLIB
     Dosage: UNK
     Dates: start: 20210308
  3. PALBOCICLIB [Suspect]
     Active Substance: PALBOCICLIB
     Dosage: AFTER HOLDING IT FOR 1 WEEK COMPLETED 7 CYCLES PALBACE YESTERDAY
  4. PALBOCICLIB [Suspect]
     Active Substance: PALBOCICLIB
     Dosage: OD-3 WEEKS ON FOLLOWED BY 1 WEEK OFF
  5. FULVESTRANT [Concomitant]
     Active Substance: FULVESTRANT
     Dosage: 500 MG, MONTHLY
  6. FULVESTRANT [Concomitant]
     Active Substance: FULVESTRANT
     Dosage: UNK
     Dates: start: 20210519
  7. DENOSUMAB [Concomitant]
     Active Substance: DENOSUMAB
     Dosage: 120 MG, MONTHLY
  8. DENOSUMAB [Concomitant]
     Active Substance: DENOSUMAB
     Dosage: UNK
     Dates: start: 20210519

REACTIONS (7)
  - Internal haemorrhage [Recovered/Resolved]
  - Enteritis infectious [Recovering/Resolving]
  - Sleep disorder [Recovered/Resolved]
  - Vomiting [Recovered/Resolved]
  - Abdominal pain upper [Recovered/Resolved]
  - Platelet count decreased [Unknown]
  - Diarrhoea [Not Recovered/Not Resolved]
